FAERS Safety Report 11327498 (Version 5)
Quarter: 2016Q4

REPORT INFORMATION
  Report Type: Spontaneous
  Country: JP (occurrence: JP)
  Receive Date: 20150731
  Receipt Date: 20161204
  Transmission Date: 20170206
  Serious: Yes (Hospitalization, Other)
  Sender: FDA-Public Use
  Company Number: JP-GLAXOSMITHKLINE-JP2015JPN099282

PATIENT
  Age: 45 Year
  Sex: Female
  Weight: 86 kg

DRUGS (5)
  1. LAMICTAL [Suspect]
     Active Substance: LAMOTRIGINE
     Dosage: 75 MG, BID
     Route: 048
     Dates: start: 20150701, end: 20150701
  2. LAMICTAL [Suspect]
     Active Substance: LAMOTRIGINE
     Indication: BIPOLAR DISORDER
     Dosage: 25 MG, QD
     Route: 048
     Dates: start: 20150618, end: 20150623
  3. LAMICTAL [Suspect]
     Active Substance: LAMOTRIGINE
     Dosage: 50 MG, BID
     Route: 048
     Dates: start: 20150624, end: 20150630
  4. ZYPREXA [Concomitant]
     Active Substance: OLANZAPINE
     Dosage: 10 MG, 1D
     Dates: start: 20150701
  5. ZYPREXA [Concomitant]
     Active Substance: OLANZAPINE
     Dosage: 5 MG, QD
     Dates: start: 20150618

REACTIONS (12)
  - Toxic skin eruption [Recovering/Resolving]
  - Rash [Recovered/Resolved]
  - Pyrexia [Recovered/Resolved]
  - Pharyngeal erythema [Recovering/Resolving]
  - Nasopharyngitis [Recovered/Resolved]
  - Generalised erythema [Recovering/Resolving]
  - Tonsillar hypertrophy [Recovering/Resolving]
  - Lymphadenopathy [Recovering/Resolving]
  - Drug reaction with eosinophilia and systemic symptoms [Recovered/Resolved]
  - Rash [Recovered/Resolved]
  - Arthralgia [Unknown]
  - Hepatic function abnormal [Recovering/Resolving]

NARRATIVE: CASE EVENT DATE: 20150628
